FAERS Safety Report 25112307 (Version 1)
Quarter: 2025Q1

REPORT INFORMATION
  Report Type: Spontaneous
  Country: US (occurrence: US)
  Receive Date: 20250324
  Receipt Date: 20250324
  Transmission Date: 20250408
  Serious: No
  Sender: UCB
  Company Number: US-UCBSA-2024024558

PATIENT
  Sex: Male

DRUGS (1)
  1. BRIVIACT [Suspect]
     Active Substance: BRIVARACETAM
     Indication: Product used for unknown indication
     Dosage: 50 MILLIGRAM, ONCE DAILY (QD), AT NIGHT
     Route: 058
     Dates: start: 2023

REACTIONS (4)
  - Weight decreased [Unknown]
  - COVID-19 [Unknown]
  - Physical disability [Unknown]
  - Soliloquy [Unknown]
